FAERS Safety Report 8664152 (Version 14)
Quarter: 2015Q2

REPORT INFORMATION
  Report Type: Report from Study
  Country: GB (occurrence: GB)
  Receive Date: 20120713
  Receipt Date: 20150508
  Transmission Date: 20150821
  Serious: Yes (Hospitalization, Other)
  Sender: FDA-Public Use
  Company Number: GB-ROCHE-1083540

PATIENT
  Age: 82 Year
  Sex: Female
  Weight: 41.9 kg

DRUGS (28)
  1. CHLORAMBUCIL [Suspect]
     Active Substance: CHLORAMBUCIL
     Indication: NON-HODGKIN^S LYMPHOMA UNSPECIFIED HISTOLOGY INDOLENT
     Dosage: LAST DOSE PRIOR TO SAE ON 27/MAR/2012
     Route: 048
     Dates: start: 20120321
  2. PARACETAMOL [Concomitant]
     Active Substance: ACETAMINOPHEN
     Route: 065
     Dates: start: 20130604
  3. CHLORHEXIDINE [Concomitant]
     Active Substance: CHLORHEXIDINE
     Indication: PROPHYLAXIS
     Dosage: BODY WASH 4%
     Route: 061
     Dates: start: 20130228, end: 20130307
  4. RITUXIMAB [Suspect]
     Active Substance: RITUXIMAB
     Indication: NON-HODGKIN^S LYMPHOMA UNSPECIFIED HISTOLOGY INDOLENT
     Dosage: LAST DOSE PRIOR TO SAE ON 14/FEB/2013
     Route: 058
     Dates: start: 20120419, end: 20130215
  5. RITUXIMAB [Suspect]
     Active Substance: RITUXIMAB
     Dosage: LAST DOSE PRIOR TO SAES ON 14/FEB/2013
     Route: 058
     Dates: start: 20130423
  6. ASPIRIN. [Concomitant]
     Active Substance: ASPIRIN
     Indication: HYPERTENSION
  7. PARACETAMOL [Concomitant]
     Active Substance: ACETAMINOPHEN
     Indication: VIRAL INFECTION
     Route: 065
     Dates: start: 20130228, end: 20130311
  8. TIMOLOL [Concomitant]
     Active Substance: TIMOLOL
     Dosage: 1 DROP; 0.5% EYE DROP
     Route: 065
  9. BUPRENORPHINE [Concomitant]
     Active Substance: BUPRENORPHINE
     Route: 065
     Dates: start: 20130530, end: 20130602
  10. BUPRENORPHINE [Concomitant]
     Active Substance: BUPRENORPHINE
     Route: 065
     Dates: start: 20130603, end: 20130606
  11. METOCLOPRAMIDE. [Concomitant]
     Active Substance: METOCLOPRAMIDE
     Indication: PREMEDICATION
     Route: 065
     Dates: start: 20120319, end: 20130930
  12. BUPRENORPHINE [Concomitant]
     Active Substance: BUPRENORPHINE
     Route: 065
     Dates: start: 20130607, end: 20130609
  13. ALLOPURINOL. [Concomitant]
     Active Substance: ALLOPURINOL
     Indication: PREMEDICATION
     Route: 065
     Dates: start: 20120319, end: 20130930
  14. RITUXIMAB [Suspect]
     Active Substance: RITUXIMAB
     Indication: NON-HODGKIN^S LYMPHOMA UNSPECIFIED HISTOLOGY INDOLENT
     Route: 042
     Dates: start: 20120321
  15. PARACETAMOL [Concomitant]
     Active Substance: ACETAMINOPHEN
     Route: 065
     Dates: start: 20130522, end: 20130522
  16. BACTROBAN NASAL [Concomitant]
     Indication: PROPHYLAXIS
     Route: 061
     Dates: start: 20130228, end: 20130308
  17. BUPRENORPHINE [Concomitant]
     Active Substance: BUPRENORPHINE
     Route: 065
     Dates: start: 20130610, end: 20130619
  18. SERTRALINE [Concomitant]
     Active Substance: SERTRALINE HYDROCHLORIDE
     Indication: ANXIETY
     Route: 065
     Dates: start: 201206
  19. LATANOPROST. [Concomitant]
     Active Substance: LATANOPROST
  20. LAMOTRIGINE. [Concomitant]
     Active Substance: LAMOTRIGINE
     Indication: SEIZURE
     Route: 065
     Dates: start: 20080328
  21. SANDO-K [Concomitant]
     Active Substance: POTASSIUM BICARBONATE\POTASSIUM CHLORIDE
     Indication: HYPOKALAEMIA
     Route: 065
     Dates: start: 20130228, end: 20130305
  22. PARACETAMOL [Concomitant]
     Active Substance: ACETAMINOPHEN
     Route: 065
     Dates: start: 20130523, end: 20130604
  23. DORZOLAMIDE HYDROCHLORIDE. [Concomitant]
     Active Substance: DORZOLAMIDE HYDROCHLORIDE
     Indication: PROPHYLAXIS
     Dosage: 1 DROP
     Route: 065
  24. LATANOPROST EYE DROPS [Concomitant]
     Active Substance: LATANOPROST
     Dosage: 1 DROP
     Route: 065
  25. CHLORAMBUCIL [Concomitant]
     Active Substance: CHLORAMBUCIL
     Indication: PREMEDICATION
     Route: 065
     Dates: start: 20120319, end: 20130930
  26. BUPRENORPHINE [Concomitant]
     Active Substance: BUPRENORPHINE
     Route: 065
     Dates: start: 20130620, end: 20130719
  27. CODEINE PHOSPHATE [Concomitant]
     Active Substance: CODEINE PHOSPHATE
     Route: 065
     Dates: start: 20130524, end: 20130530
  28. GABAPENTIN. [Concomitant]
     Active Substance: GABAPENTIN
     Indication: DEPRESSION
     Route: 065
     Dates: end: 20120628

REACTIONS (2)
  - Urinary tract infection [Not Recovered/Not Resolved]
  - Injection site reaction [Recovered/Resolved]

NARRATIVE: CASE EVENT DATE: 20120419
